FAERS Safety Report 6446799-4 (Version None)
Quarter: 2009Q4

REPORT INFORMATION
  Report Type: 
  Country: None (occurrence: None)
  Receive Date: 20091119
  Receipt Date: 20091109
  Transmission Date: 20100525
  Serious: Yes (Other)
  Sender: FDA-Public Use
  Company Number: PHEH2009US08421

PATIENT
  Sex: Male

DRUGS (1)
  1. RECLAST [Suspect]
     Dosage: UNK
     Dates: start: 20090301

REACTIONS (7)
  - FOOT FRACTURE [None]
  - LOOSE TOOTH [None]
  - ORTHOPEDIC PROCEDURE [None]
  - SHOULDER ARTHROPLASTY [None]
  - SPINAL FRACTURE [None]
  - TOOTH DISORDER [None]
  - TOOTH FRACTURE [None]
